FAERS Safety Report 12834953 (Version 2)
Quarter: 2016Q4

REPORT INFORMATION
  Report Type: Spontaneous
  Country: AR (occurrence: AR)
  Receive Date: 20161010
  Receipt Date: 20161108
  Transmission Date: 20170207
  Serious: Yes (Death, Life-Threatening, Other)
  Sender: FDA-Public Use
  Company Number: AR-SEATTLE GENETICS-2016SGN01569

PATIENT

DRUGS (3)
  1. BENDAMUSTINE HYDROCHLORIDE. [Suspect]
     Active Substance: BENDAMUSTINE HYDROCHLORIDE
     Indication: HODGKIN^S DISEASE REFRACTORY
     Dosage: 90 MG/M2, UNK
     Route: 042
     Dates: start: 20160418, end: 20160916
  2. BENDAMUSTINE HYDROCHLORIDE. [Suspect]
     Active Substance: BENDAMUSTINE HYDROCHLORIDE
     Dosage: 100 UNK, UNK
     Route: 042
     Dates: start: 20160916, end: 20160916
  3. ADCETRIS [Suspect]
     Active Substance: BRENTUXIMAB VEDOTIN
     Indication: HODGKIN^S DISEASE REFRACTORY
     Dosage: 1.8 MG/KG, UNK
     Route: 042
     Dates: start: 20160418, end: 20160916

REACTIONS (13)
  - Fatigue [Unknown]
  - Deafness [Not Recovered/Not Resolved]
  - Chills [Unknown]
  - Anaemia [Unknown]
  - Weight decreased [Not Recovered/Not Resolved]
  - Muscular weakness [Not Recovered/Not Resolved]
  - Myalgia [Unknown]
  - Progressive multifocal leukoencephalopathy [Fatal]
  - Alopecia [Unknown]
  - Ataxia [Not Recovered/Not Resolved]
  - Arthralgia [Unknown]
  - Peripheral motor neuropathy [Unknown]
  - Rash [Unknown]

NARRATIVE: CASE EVENT DATE: 201604
